FAERS Safety Report 7909280-9 (Version None)
Quarter: 2011Q4

REPORT INFORMATION
  Report Type: 
  Country: None (occurrence: None)
  Receive Date: 20111111
  Receipt Date: 20111104
  Transmission Date: 20120403
  Serious: Yes (Other)
  Sender: FDA-Public Use
  Company Number: US-AMGEN-USASP2011057701

PATIENT
  Age: 58 Year
  Sex: Female

DRUGS (1)
  1. ENBREL [Suspect]
     Indication: RHEUMATOID ARTHRITIS
     Dosage: 50 MG, QWK
     Dates: start: 20040801

REACTIONS (7)
  - HEADACHE [None]
  - EPISTAXIS [None]
  - EYE IRRITATION [None]
  - CHEST DISCOMFORT [None]
  - NASAL DISCOMFORT [None]
  - DYSPNOEA [None]
  - WHEEZING [None]
